FAERS Safety Report 9911738 (Version 1)
Quarter: 2014Q1

REPORT INFORMATION
  Report Type: Spontaneous
  Country: IT (occurrence: IT)
  Receive Date: 20140219
  Receipt Date: 20140219
  Transmission Date: 20141002
  Serious: Yes (Hospitalization)
  Sender: FDA-Public Use
  Company Number: PHHY2014IT020426

PATIENT
  Age: 86 Year
  Sex: Female

DRUGS (10)
  1. ACETYLSALICYLIC ACID [Suspect]
     Dates: start: 20130101, end: 20131109
  2. COUMADIN//WARFARIN SODIUM [Suspect]
     Dosage: 5 MG, UNK
     Dates: start: 20130101, end: 20131109
  3. GARDENALE [Concomitant]
     Dosage: 50 MG, UNK
  4. ENTACT [Concomitant]
     Dosage: 10 MG, UNK
  5. SERTRALINE [Concomitant]
  6. CALCITRIOL [Concomitant]
  7. NITROGLYCERIN [Concomitant]
  8. ESOMEPRAZOLE [Concomitant]
     Dosage: 40 MG, UNK
  9. BISOPROLOL [Concomitant]
     Dosage: 2.5 MG, UNK
  10. ENALAPRIL [Concomitant]
     Dosage: 20 MG, UNK

REACTIONS (1)
  - Melaena [Unknown]
